FAERS Safety Report 21931998 (Version 1)
Quarter: 2023Q1

REPORT INFORMATION
  Report Type: Spontaneous
  Country: AT (occurrence: AT)
  Receive Date: 20230131
  Receipt Date: 20230131
  Transmission Date: 20230418
  Serious: Yes (Hospitalization, Other)
  Sender: FDA-Public Use
  Company Number: AT-PFIZER INC-PV202200012760

PATIENT
  Age: 62 Year
  Sex: Female

DRUGS (1)
  1. VYNDAQEL [Suspect]
     Active Substance: TAFAMIDIS MEGLUMINE
     Dosage: UNK
     Dates: start: 2020

REACTIONS (3)
  - Heart transplant [Unknown]
  - Cardiac amyloidosis [Unknown]
  - Disease progression [Unknown]

NARRATIVE: CASE EVENT DATE: 20230101
